FAERS Safety Report 25376514 (Version 1)
Quarter: 2025Q2

REPORT INFORMATION
  Report Type: Spontaneous
  Country: US (occurrence: US)
  Receive Date: 20250530
  Receipt Date: 20250530
  Transmission Date: 20250717
  Serious: Yes (Other)
  Sender: AMGEN
  Company Number: US-AMGEN-USASP2025099881

PATIENT

DRUGS (12)
  1. RITUXIMAB [Suspect]
     Active Substance: RITUXIMAB
     Indication: Uveitis
     Route: 065
  2. INFLIXIMAB [Suspect]
     Active Substance: INFLIXIMAB
     Indication: Uveitis
     Route: 065
  3. ADALIMUMAB [Concomitant]
     Active Substance: ADALIMUMAB
  4. METHOTREXATE [Concomitant]
     Active Substance: METHOTREXATE
  5. MYCOPHENOLIC ACID [Concomitant]
     Active Substance: MYCOPHENOLIC ACID
  6. AZATHIOPRINE [Concomitant]
     Active Substance: AZATHIOPRINE
  7. CYCLOSPORINE [Concomitant]
     Active Substance: CYCLOSPORINE
  8. TACROLIMUS [Concomitant]
     Active Substance: TACROLIMUS
  9. ABATACEPT [Concomitant]
     Active Substance: ABATACEPT
  10. TOCILIZUMAB [Concomitant]
     Active Substance: TOCILIZUMAB
  11. SULFASALAZINE [Concomitant]
     Active Substance: SULFASALAZINE
  12. TOFACITINIB [Concomitant]
     Active Substance: TOFACITINIB

REACTIONS (15)
  - Systemic infection [Unknown]
  - Leukopenia [Unknown]
  - Adverse reaction [Unknown]
  - Hepatic enzyme abnormal [Unknown]
  - White blood cell count abnormal [Unknown]
  - Alopecia [Unknown]
  - Mouth ulceration [Unknown]
  - Fatigue [Unknown]
  - Nausea [Unknown]
  - Headache [Unknown]
  - Diarrhoea [Unknown]
  - Rash [Unknown]
  - Anaemia [Unknown]
  - Tremor [Unknown]
  - Off label use [Unknown]
